FAERS Safety Report 20334527 (Version 2)
Quarter: 2022Q1

REPORT INFORMATION
  Report Type: Report from Study
  Country: US (occurrence: US)
  Receive Date: 20220114
  Receipt Date: 20220210
  Transmission Date: 20220424
  Serious: Yes (Death, Life-Threatening)
  Sender: FDA-Public Use
  Company Number: US-AMGEN-USACT2022005919

PATIENT
  Age: 68 Year
  Sex: Female
  Weight: 45 kg

DRUGS (18)
  1. EVOLOCUMAB [Suspect]
     Active Substance: EVOLOCUMAB
     Indication: Dyslipidaemia
     Dosage: 1 MILLILITER
     Route: 058
     Dates: start: 20160914, end: 20171011
  2. DARBEPOETIN ALFA [Concomitant]
     Active Substance: DARBEPOETIN ALFA
     Dosage: 25 MICROGRAM
     Dates: start: 2000
  3. ASPIRIN [Concomitant]
     Active Substance: ASPIRIN
     Dosage: 162.5 MILLIGRAM
     Dates: start: 2006
  4. CLOPIDOGREL [Concomitant]
     Active Substance: CLOPIDOGREL BISULFATE
     Dosage: 75 MILLIGRAM
     Dates: start: 20000810
  5. INSULIN NOS [Concomitant]
     Active Substance: INSULIN NOS
     Dosage: UNK
  6. CALCIUM [Concomitant]
     Active Substance: CALCIUM
     Dosage: 600 MILLIGRAM
     Dates: start: 2000
  7. HUMALOG [Concomitant]
     Active Substance: INSULIN LISPRO
     Dosage: 60 UNK
     Dates: start: 2007
  8. COLACE [Concomitant]
     Active Substance: DOCUSATE SODIUM
     Dosage: 100 MILLIGRAM
     Dates: start: 2006
  9. VITAMIN D3 [Concomitant]
     Active Substance: CHOLECALCIFEROL
     Dosage: 1000 UNK
     Dates: start: 2012
  10. IRON [Concomitant]
     Active Substance: IRON
     Dosage: 200 MILLIGRAM
     Dates: start: 2008
  11. NITROSTAT [Concomitant]
     Active Substance: NITROGLYCERIN
     Dosage: 0.3 MILLIGRAM
     Dates: start: 2000
  12. AMLODIPINE [Concomitant]
     Active Substance: AMLODIPINE BESYLATE
     Dosage: 2.5 MILLIGRAM
     Dates: start: 2006
  13. ESTRACE [Concomitant]
     Active Substance: ESTRADIOL
     Dosage: 0.1 GRAM
     Dates: start: 2010
  14. FOLIC ACID [Concomitant]
     Active Substance: FOLIC ACID
     Dosage: 1 MILLIGRAM
     Dates: start: 2006
  15. ISOSORBIDE MONONITRATE [Concomitant]
     Active Substance: ISOSORBIDE MONONITRATE
     Dosage: 30 MILLIGRAM
     Dates: start: 2006
  16. VALSARTAN [Concomitant]
     Active Substance: VALSARTAN
     Dosage: 80 MILLIGRAM
     Dates: start: 2006
  17. FUROSEMIDE [Concomitant]
     Active Substance: FUROSEMIDE
     Dosage: 10 MILLIGRAM
     Dates: start: 2006
  18. CARVEDILOL [Concomitant]
     Active Substance: CARVEDILOL
     Dosage: 12.5 MILLIGRAM
     Dates: start: 2012

REACTIONS (1)
  - Death [Fatal]

NARRATIVE: CASE EVENT DATE: 20210607
